FAERS Safety Report 4842964-8 (Version None)
Quarter: 2005Q4

REPORT INFORMATION
  Report Type: 
  Country: None (occurrence: None)
  Receive Date: 20051130
  Receipt Date: 20051014
  Transmission Date: 20060501
  Serious: Yes (Hospitalization)
  Sender: FDA-Public Use
  Company Number: 217786

PATIENT
  Age: 63 Year
  Sex: Male
  Weight: 93 kg

DRUGS (4)
  1. AVASTIN [Suspect]
     Indication: COLORECTAL CANCER METASTATIC
     Dosage: 450 MG, QD, INTRAVENOUS
     Route: 042
     Dates: start: 20050217, end: 20050818
  2. CALCIUM FOLINATE (LEUCOVORIN CALCIUM) [Concomitant]
  3. FLUOROURACIL [Concomitant]
  4. IRINOTECAN HCL [Concomitant]

REACTIONS (2)
  - FISTULA [None]
  - RECTAL ULCER [None]
